FAERS Safety Report 25526404 (Version 1)
Quarter: 2025Q3

REPORT INFORMATION
  Report Type: Spontaneous
  Country: US (occurrence: US)
  Receive Date: 20250707
  Receipt Date: 20250707
  Transmission Date: 20251021
  Serious: Yes (Other)
  Sender: PFIZER
  Company Number: US-PFIZER INC-PV202500079430

PATIENT
  Age: 31 Year
  Sex: Female

DRUGS (1)
  1. RIMEGEPANT [Suspect]
     Active Substance: RIMEGEPANT

REACTIONS (3)
  - Respiratory arrest [Unknown]
  - Dyspnoea [Unknown]
  - Wheezing [Unknown]
